FAERS Safety Report 25029481 (Version 2)
Quarter: 2025Q4

REPORT INFORMATION
  Report Type: Spontaneous
  Country: GB (occurrence: GB)
  Receive Date: 20250303
  Receipt Date: 20251229
  Transmission Date: 20260118
  Serious: Yes (Hospitalization, Other)
  Sender: AMGEN
  Company Number: GB-AMGEN-GBRSP2025037674

PATIENT

DRUGS (2)
  1. USTEKINUMAB [Suspect]
     Active Substance: USTEKINUMAB
     Indication: Crohn^s disease
     Dosage: UNK
     Route: 065
  2. RISANKIZUMAB [Suspect]
     Active Substance: RISANKIZUMAB
     Indication: Crohn^s disease
     Route: 065

REACTIONS (7)
  - Crohn^s disease [Unknown]
  - Urinary tract infection [Unknown]
  - Abdominal pain [Unknown]
  - Vomiting [Unknown]
  - Therapy non-responder [Unknown]
  - Loss of therapeutic response [Unknown]
  - Rash [Unknown]
